FAERS Safety Report 7959162-1 (Version None)
Quarter: 2011Q4

REPORT INFORMATION
  Report Type: 
  Country: None (occurrence: None)
  Receive Date: 20111206
  Receipt Date: 20111201
  Transmission Date: 20120403
  Serious: Yes (Other)
  Sender: FDA-Public Use
  Company Number: CN-PFIZER INC-2011287909

PATIENT
  Age: 37 Year
  Sex: Male

DRUGS (1)
  1. CLINDAMYCIN PHOSPHATE [Suspect]
     Indication: CHOLECYSTECTOMY
     Dosage: 3 G, TWICE DAILY
     Route: 041
     Dates: start: 20071201, end: 20070101

REACTIONS (2)
  - HAEMOLYTIC ANAEMIA [None]
  - PROTHROMBIN TIME PROLONGED [None]
